FAERS Safety Report 18088194 (Version 2)
Quarter: 2020Q3

REPORT INFORMATION
  Report Type: Spontaneous
  Country: US (occurrence: US)
  Receive Date: 20200729
  Receipt Date: 20200827
  Transmission Date: 20201103
  Serious: Yes (Other)
  Sender: FDA-Public Use
  Company Number: US-THERATECHNOLOGIES INC.-2020-THE-TES-000151

PATIENT
  Age: 57 Year
  Sex: Male
  Weight: 83.9 kg

DRUGS (2)
  1. EGRIFTA [Suspect]
     Active Substance: TESAMORELIN ACETATE
     Indication: LIPODYSTROPHY ACQUIRED
     Dosage: 2 MG, QD
     Route: 058
     Dates: start: 2017, end: 202006
  2. EGRIFTA [Suspect]
     Active Substance: TESAMORELIN ACETATE
     Dosage: 2 MG, QD
     Route: 058
     Dates: start: 20200617

REACTIONS (2)
  - Abdominal hernia repair [Recovered/Resolved]
  - Product dose omission issue [Recovered/Resolved]

NARRATIVE: CASE EVENT DATE: 20200617
